FAERS Safety Report 8625018-4 (Version None)
Quarter: 2012Q3

REPORT INFORMATION
  Report Type: 
  Country: None (occurrence: None)
  Receive Date: 20120827
  Receipt Date: 20120823
  Transmission Date: 20120928
  Serious: Yes (Other)
  Sender: FDA-Public Use
  Company Number: US-PFIZER INC-2011222913

PATIENT
  Sex: Female

DRUGS (3)
  1. COZAAR [Suspect]
     Dosage: UNK
  2. XANAX [Suspect]
     Dosage: 0.25MG DAILY
  3. XANAX [Suspect]
     Dosage: HALF A TABLET OF 0.5MG

REACTIONS (5)
  - PARAESTHESIA [None]
  - DIABETES MELLITUS [None]
  - DISTURBANCE IN ATTENTION [None]
  - PAIN [None]
  - FEELING ABNORMAL [None]
